FAERS Safety Report 12939439 (Version 2)
Quarter: 2020Q2

REPORT INFORMATION
  Report Type: Spontaneous
  Country: KR (occurrence: KR)
  Receive Date: 20161115
  Receipt Date: 20200603
  Transmission Date: 20200713
  Serious: Yes (Hospitalization, Other)
  Sender: FDA-Public Use
  Company Number: KR-LUPIN PHARMACEUTICALS INC.-2016-05034

PATIENT
  Age: 25 Year
  Sex: Female
  Weight: 40 kg

DRUGS (20)
  1. MOXIFLOXACIN. [Suspect]
     Active Substance: MOXIFLOXACIN
     Indication: PULMONARY TUBERCULOSIS
     Dosage: 400 MILLIGRAM
     Route: 065
     Dates: start: 20130624, end: 20130811
  2. RIFAMPIN. [Suspect]
     Active Substance: RIFAMPIN
     Indication: LYMPH NODE TUBERCULOSIS
     Dosage: UNK
     Route: 065
     Dates: start: 20130603, end: 20130604
  3. PYRAZINAMIDE. [Suspect]
     Active Substance: PYRAZINAMIDE
     Indication: PULMONARY TUBERCULOSIS
     Dosage: 1500 MG,UNK,UNKNOWN
     Route: 065
     Dates: start: 20130513, end: 20130526
  4. AMINOSALICYLIC ACID [Suspect]
     Active Substance: AMINOSALICYLIC ACID
     Indication: LYMPH NODE TUBERCULOSIS
  5. MOXIFLOXACIN. [Suspect]
     Active Substance: MOXIFLOXACIN
     Dosage: UNK
     Route: 065
     Dates: start: 20130925, end: 20130928
  6. PYRAZINAMIDE. [Suspect]
     Active Substance: PYRAZINAMIDE
     Indication: LYMPH NODE TUBERCULOSIS
     Dosage: 1000 MG,UNK,UNKNOWN
     Route: 065
     Dates: start: 20130605, end: 20130901
  7. ISONIAZID. [Suspect]
     Active Substance: ISONIAZID
     Indication: LYMPH NODE TUBERCULOSIS
     Dosage: 300 MG,UNK,UNKNOWN
     Route: 065
     Dates: start: 20130905, end: 20130905
  8. RIFAMPIN. [Suspect]
     Active Substance: RIFAMPIN
     Indication: PULMONARY TUBERCULOSIS
     Dosage: 600 MG,UNK,UNKNOWN
     Route: 065
     Dates: start: 20130513, end: 20130526
  9. AMINOSALICYLIC ACID [Suspect]
     Active Substance: AMINOSALICYLIC ACID
     Indication: PULMONARY TUBERCULOSIS
     Dosage: UNK
     Route: 065
     Dates: start: 20130902, end: 20130905
  10. ETHAMBUTOL [Suspect]
     Active Substance: ETHAMBUTOL HYDROCHLORIDE
     Indication: LYMPH NODE TUBERCULOSIS
     Dosage: 400 MILLIGRAM
     Route: 065
     Dates: start: 20130610, end: 20130901
  11. RIFAMPIN. [Suspect]
     Active Substance: RIFAMPIN
     Dosage: 75 MILLIGRAM, UNK
     Route: 065
     Dates: start: 20130613, end: 20130623
  12. CYCLOSERINE. [Suspect]
     Active Substance: CYCLOSERINE
     Indication: PULMONARY TUBERCULOSIS
     Dosage: 250 MILLIGRAM, UNK
     Route: 065
     Dates: start: 20130831, end: 20130904
  13. STREPTOMYCIN [Suspect]
     Active Substance: STREPTOMYCIN SULFATE
     Indication: LYMPH NODE TUBERCULOSIS
  14. ETHIONAMIDE [Suspect]
     Active Substance: ETHIONAMIDE
     Indication: PULMONARY TUBERCULOSIS
     Dosage: UNK
     Route: 065
     Dates: start: 20130902, end: 20130905
  15. ETHIONAMIDE [Suspect]
     Active Substance: ETHIONAMIDE
     Indication: LYMPH NODE TUBERCULOSIS
  16. ISONIAZID. [Suspect]
     Active Substance: ISONIAZID
     Indication: PULMONARY TUBERCULOSIS
     Dosage: 300 MG,UNK,UNKNOWN
     Route: 065
     Dates: start: 20130513, end: 20130901
  17. ETHAMBUTOL [Suspect]
     Active Substance: ETHAMBUTOL HYDROCHLORIDE
     Indication: PULMONARY TUBERCULOSIS
     Dosage: 800 MILLIGRAM
     Route: 065
     Dates: start: 20130513, end: 20130526
  18. MOXIFLOXACIN. [Suspect]
     Active Substance: MOXIFLOXACIN
     Indication: LYMPH NODE TUBERCULOSIS
     Dosage: UNK
     Route: 065
     Dates: start: 20130903, end: 20130903
  19. CYCLOSERINE. [Suspect]
     Active Substance: CYCLOSERINE
     Indication: LYMPH NODE TUBERCULOSIS
  20. STREPTOMYCIN [Suspect]
     Active Substance: STREPTOMYCIN SULFATE
     Indication: PULMONARY TUBERCULOSIS
     Dosage: 2 G,UNK,UNKNOWN
     Route: 042
     Dates: start: 20130831, end: 20130922

REACTIONS (3)
  - Rash [Recovering/Resolving]
  - Drug reaction with eosinophilia and systemic symptoms [Unknown]
  - Acute generalised exanthematous pustulosis [Unknown]
